FAERS Safety Report 6877566-5 (Version None)
Quarter: 2010Q3

REPORT INFORMATION
  Report Type: 
  Country: None (occurrence: None)
  Receive Date: 20100727
  Receipt Date: 20100219
  Transmission Date: 20110219
  Serious: No
  Sender: FDA-Public Use
  Company Number: US-ABBOTT-10P-163-0628591-00

PATIENT
  Sex: Male
  Weight: 64.468 kg

DRUGS (4)
  1. SYNTHROID [Suspect]
     Indication: HYPOTHYROIDISM
     Dates: start: 19790101, end: 20100201
  2. SYNTHROID [Suspect]
     Dates: start: 20100201
  3. BENICAR [Concomitant]
     Indication: HYPERTENSION
  4. AMLODIPINE [Concomitant]
     Indication: HYPERTENSION

REACTIONS (3)
  - BLOOD THYROID STIMULATING HORMONE INCREASED [None]
  - COELIAC DISEASE [None]
  - WEIGHT DECREASED [None]
